FAERS Safety Report 14710005 (Version 3)
Quarter: 2019Q1

REPORT INFORMATION
  Report Type: Report from Study
  Country: IT (occurrence: IT)
  Receive Date: 20180403
  Receipt Date: 20190130
  Transmission Date: 20190417
  Serious: Yes (Death)
  Sender: FDA-Public Use
  Company Number: IT-PFIZER INC-2018131661

PATIENT
  Age: 67 Year
  Sex: Male

DRUGS (18)
  1. ADALAT CRONO [Concomitant]
     Active Substance: NIFEDIPINE
     Indication: HYPERTENSION
     Dosage: UNK
     Dates: start: 201609
  2. LEVOPRAID [LEVOSULPIRIDE] [Concomitant]
     Active Substance: LEVOSULPIRIDE
     Indication: PANIC DISORDER
     Dosage: UNK
     Dates: start: 2015
  3. ORASOL [CHLORHEXIDINE GLUCONATE] [Concomitant]
     Indication: STOMATITIS
     Dosage: UNK
     Dates: start: 201604, end: 201604
  4. SUCRALFIN [Concomitant]
     Indication: GASTROOESOPHAGEAL REFLUX DISEASE
     Dosage: UNK
     Dates: start: 201604
  5. SPIRIVA [Concomitant]
     Active Substance: TIOTROPIUM BROMIDE MONOHYDRATE
     Indication: BRONCHIECTASIS
     Dosage: UNK
     Dates: start: 2007
  6. GERDOFF [Concomitant]
     Indication: GASTROOESOPHAGEAL REFLUX DISEASE
     Dosage: UNK
     Dates: start: 201605
  7. CARDIOASPIRIN [Concomitant]
     Active Substance: ASPIRIN
     Indication: HYPERTENSIVE HEART DISEASE
     Dosage: UNK
     Dates: start: 2010
  8. EUTIROX [Concomitant]
     Active Substance: LEVOTHYROXINE SODIUM
     Indication: HYPOTHYROIDISM
     Dosage: UNK
     Dates: start: 2011
  9. ALLOPURINOL. [Concomitant]
     Active Substance: ALLOPURINOL
     Indication: HYPERURICAEMIA
     Dosage: UNK
     Dates: start: 2014
  10. FLEIDERINA [Concomitant]
     Active Substance: FLECAINIDE ACETATE
     Dosage: UNK
     Dates: start: 2009
  11. CIPRALEX [Concomitant]
     Active Substance: ESCITALOPRAM OXALATE
     Indication: PANIC DISORDER
     Dosage: UNK
     Dates: start: 2010
  12. MEGESTIL [Concomitant]
     Active Substance: MEGESTROL ACETATE
     Indication: ASTHENIA
     Dosage: UNK
     Dates: start: 201607
  13. PANTOPRAZOLO [Concomitant]
     Active Substance: PANTOPRAZOLE SODIUM
     Indication: PROPHYLAXIS
     Dosage: UNK
     Dates: start: 2010
  14. ATENOL [Concomitant]
     Active Substance: ATENOLOL
     Indication: HYPERTENSIVE HEART DISEASE
     Dosage: UNK
     Dates: start: 2010
  15. SUTENT [Suspect]
     Active Substance: SUNITINIB MALATE
     Indication: RENAL CELL CARCINOMA
     Dosage: 50 MG, 1 CAPSULE A DAY
     Dates: start: 201603, end: 20161117
  16. XANAX [Concomitant]
     Active Substance: ALPRAZOLAM
     Indication: PANIC DISORDER
     Dosage: UNK
     Dates: start: 2015
  17. APROVEL [Concomitant]
     Active Substance: IRBESARTAN
     Indication: HYPERTENSIVE HEART DISEASE
     Dosage: UNK
     Dates: start: 2010
  18. NAUMIX SPRAY [Concomitant]
     Indication: NAUSEA
     Dosage: UNK
     Dates: start: 201606

REACTIONS (1)
  - Neoplasm progression [Fatal]

NARRATIVE: CASE EVENT DATE: 20170801
